FAERS Safety Report 5199961-5 (Version None)
Quarter: 2007Q1

REPORT INFORMATION
  Report Type: 
  Country: None (occurrence: None)
  Receive Date: 20070103
  Receipt Date: 20061215
  Transmission Date: 20070707
  Serious: Yes (Hospitalization)
  Sender: FDA-Public Use
  Company Number: 06H-163-0311548-00

PATIENT
  Age: 48 Year
  Sex: Male
  Weight: 107.9561 kg

DRUGS (2)
  1. DOBUTAMINE HCL [Suspect]
     Indication: STRESS ECHOCARDIOGRAM
     Dosage: SEE IMAGE
     Route: 042
     Dates: start: 20061208
  2. DOBUTAMINE HCL [Suspect]
     Indication: STRESS ECHOCARDIOGRAM
     Dosage: SEE IMAGE
     Route: 042
     Dates: start: 20061208

REACTIONS (3)
  - BRADYCARDIA [None]
  - HEADACHE [None]
  - HYPERTENSION [None]
